FAERS Safety Report 8963105 (Version 2)
Quarter: 2013Q1

REPORT INFORMATION
  Report Type: Report from Study
  Country: US (occurrence: US)
  Receive Date: 20121213
  Receipt Date: 20130103
  Transmission Date: 20140127
  Serious: Yes (Hospitalization)
  Sender: FDA-Public Use
  Company Number: US-ASTRAZENECA-2012SE92600

PATIENT
  Age: 22188 Day
  Sex: Male

DRUGS (28)
  1. NEXIUM [Suspect]
     Indication: GASTRITIS PROPHYLAXIS
     Route: 048
     Dates: start: 20100413, end: 20120812
  2. AMITIZA [Suspect]
     Indication: CONSTIPATION
     Dosage: 24 UG TID OR PRN
     Route: 048
     Dates: end: 20120812
  3. REGLAN [Suspect]
     Indication: GASTROOESOPHAGEAL REFLUX DISEASE
     Dosage: 5 MG TID AC PRN
     Route: 048
     Dates: start: 20120411
  4. CELECOXIB,IBUPROFEN,NAPROXEN,PLACEBO [Suspect]
     Indication: OSTEOARTHRITIS
     Dosage: THREE TIMES A DAY
     Route: 048
     Dates: start: 20100413, end: 20120812
  5. CELECOXIB,IBUPROFEN,NAPROXEN,PLACEBO [Suspect]
     Indication: OSTEOARTHRITIS
     Dosage: THREE TIMES A DAY
     Route: 048
  6. VALIUM [Concomitant]
     Indication: ANXIETY
  7. DELTASONE [Concomitant]
     Dates: start: 20120628
  8. FLONASE [Concomitant]
     Indication: SEASONAL ALLERGY
     Dates: start: 20120629, end: 20120929
  9. SALBUMOL [Concomitant]
     Indication: CHRONIC OBSTRUCTIVE PULMONARY DISEASE
  10. NIZORAL [Concomitant]
     Indication: PRURITUS
  11. SYNTHROID [Concomitant]
     Indication: HYPOTHYROIDISM
  12. XYLOCAINE [Concomitant]
     Indication: PAIN IN EXTREMITY
  13. XYLOCAINE [Concomitant]
     Indication: NEUROPATHY PERIPHERAL
  14. ALDACTONE [Concomitant]
  15. MOMETASONE FUROATE [Concomitant]
  16. AMBIEN [Concomitant]
     Dates: start: 20120326, end: 20120926
  17. DUONEB [Concomitant]
  18. VENTOLIN [Concomitant]
     Indication: WHEEZING
     Dates: start: 20120215
  19. LASIX [Concomitant]
     Dates: start: 20120203
  20. PLAVIX [Concomitant]
  21. CYMBALTA [Concomitant]
  22. SPIRIVA HANDIHALER [Concomitant]
     Dates: start: 20120118
  23. NORCO [Concomitant]
  24. CLARITIN [Concomitant]
     Indication: SEASONAL ALLERGY
  25. VYTORIN [Concomitant]
  26. MS CONTIN [Concomitant]
  27. CORDARONE [Concomitant]
     Dates: start: 20110520
  28. ACETYLSALICYLIC ACID [Concomitant]
     Dates: start: 1995

REACTIONS (2)
  - Diarrhoea [Recovered/Resolved]
  - Dehydration [Recovered/Resolved]
